FAERS Safety Report 8420474-9 (Version None)
Quarter: 2012Q2

REPORT INFORMATION
  Report Type: 
  Country: None (occurrence: None)
  Receive Date: 20120608
  Receipt Date: 20120530
  Transmission Date: 20120825
  Serious: Yes (Hospitalization)
  Sender: FDA-Public Use
  Company Number: US-ASTRAZENECA-2011SE41558

PATIENT
  Sex: Female

DRUGS (1)
  1. NEXIUM [Suspect]
     Route: 048
     Dates: start: 20040101, end: 20110101

REACTIONS (4)
  - OSTEOPOROSIS [None]
  - ANKLE FRACTURE [None]
  - OSTEOPENIA [None]
  - LOWER LIMB FRACTURE [None]
